FAERS Safety Report 5750879-6 (Version None)
Quarter: 2008Q2

REPORT INFORMATION
  Report Type: 
  Country: None (occurrence: None)
  Receive Date: 20080528
  Receipt Date: 20080523
  Transmission Date: 20081010
  Serious: Yes (Other)
  Sender: FDA-Public Use
  Company Number: PT-ASTRAZENECA-2008AC01333

PATIENT
  Age: 68 Year
  Sex: Male

DRUGS (6)
  1. NEXIUM [Suspect]
     Indication: HELICOBACTER INFECTION
     Dosage: 20 MG
     Route: 048
  2. TRIATEC [Concomitant]
  3. VISACOR [Concomitant]
  4. ASPEGIC 1000 [Concomitant]
  5. CLARITHROMYCIN [Concomitant]
     Indication: HELICOBACTER INFECTION
  6. AMOXICILLIN [Concomitant]
     Indication: HELICOBACTER INFECTION

REACTIONS (4)
  - ERYTHEMA [None]
  - HYPERSENSITIVITY [None]
  - LIP SWELLING [None]
  - SWOLLEN TONGUE [None]
